FAERS Safety Report 14213685 (Version 1)
Quarter: 2017Q4

REPORT INFORMATION
  Report Type: Spontaneous
  Country: DE (occurrence: DE)
  Receive Date: 20171122
  Receipt Date: 20171122
  Transmission Date: 20180321
  Serious: Yes (Other)
  Sender: FDA-Public Use
  Company Number: DE-ABBVIE-17S-062-2170672-00

PATIENT

DRUGS (4)
  1. EXVIERA [Suspect]
     Active Substance: DASABUVIR
     Indication: CHRONIC HEPATITIS C
     Dosage: PATIENT TOOK ONLY 2 TABLETS IN TOTAL PER DAY.
     Route: 048
  2. VIEKIRAX [Suspect]
     Active Substance: OMBITASVIR\PARITAPREVIR\RITONAVIR
     Indication: CHRONIC HEPATITIS C
     Dosage: PATIENT TOOK ONLY 2 TABLETS IN TOTAL PER DAY.
     Route: 048
  3. EXVIERA [Suspect]
     Active Substance: DASABUVIR
     Dosage: THE PATIENT TOOK TABLETS IT AS IT WAS TOLD.
     Route: 048
  4. VIEKIRAX [Suspect]
     Active Substance: OMBITASVIR\PARITAPREVIR\RITONAVIR
     Dosage: UNIT DOSE: 25/150/100 MG;  FORM STRENGTH: 12.5/75/50 MG. TOOK THE TABLETS AS IT WAS TOLD.
     Route: 048

REACTIONS (1)
  - Gallbladder operation [Unknown]
